FAERS Safety Report 7494497-0 (Version None)
Quarter: 2011Q2

REPORT INFORMATION
  Report Type: 
  Country: None (occurrence: None)
  Receive Date: 20110520
  Receipt Date: 20110506
  Transmission Date: 20111010
  Serious: Yes (Hospitalization, Other)
  Sender: FDA-Public Use
  Company Number: PHHY2011DE39745

PATIENT
  Sex: Male

DRUGS (7)
  1. INSULIN [Concomitant]
     Indication: DIABETES MELLITUS
  2. BETA BLOCKING AGENTS [Concomitant]
  3. ALISKIREN [Suspect]
     Indication: HYPERTENSION
     Dosage: 300 MG, UNK
     Route: 048
     Dates: start: 20090608
  4. ALISKIREN [Suspect]
     Dosage: 150 MG, UNK
     Route: 048
  5. THIENOPYRIDINES [Concomitant]
  6. ANTIADRENERGIC AGENTS, CENTRALLY ACTING [Concomitant]
  7. STATINS [Concomitant]

REACTIONS (5)
  - ATRIAL FLUTTER [None]
  - FEMORAL NECK FRACTURE [None]
  - CEREBROVASCULAR ACCIDENT [None]
  - EMBOLISM [None]
  - DYSPNOEA [None]
